FAERS Safety Report 23093668 (Version 1)
Quarter: 2023Q4

REPORT INFORMATION
  Report Type: Spontaneous
  Country: US (occurrence: US)
  Receive Date: 20231023
  Receipt Date: 20231023
  Transmission Date: 20240110
  Serious: No
  Sender: FDA-Public Use
  Company Number: US-SA-SAC20231017000291

PATIENT
  Sex: Male

DRUGS (1)
  1. DUPIXENT [Suspect]
     Active Substance: DUPILUMAB
     Dosage: 300 MG EVERY 4 WEEKS
     Route: 058

REACTIONS (4)
  - Pallor [Unknown]
  - Skin discolouration [Unknown]
  - Skin irritation [Recovering/Resolving]
  - Pruritus [Recovering/Resolving]
